FAERS Safety Report 13940863 (Version 1)
Quarter: 2017Q3

REPORT INFORMATION
  Report Type: Spontaneous
  Country: ES (occurrence: ES)
  Receive Date: 20170906
  Receipt Date: 20170906
  Transmission Date: 20171127
  Serious: Yes (Death, Hospitalization, Other)
  Sender: FDA-Public Use
  Company Number: ES-MYLANLABS-2017M1054940

PATIENT
  Age: 11 Year
  Sex: Female

DRUGS (2)
  1. IBUPROFEN. [Suspect]
     Active Substance: IBUPROFEN
     Indication: INJURY
     Dosage: 600 MG, Q8H
     Route: 065
  2. LAMOTRIGINE. [Suspect]
     Active Substance: LAMOTRIGINE
     Indication: SEIZURE
     Dosage: 50 MG (25 MG IN THE MORNING AND 50 MG AT NIGHT TO PROGRESSIVE DOSE)
     Route: 065

REACTIONS (3)
  - Septic shock [Fatal]
  - Toxic epidermal necrolysis [Fatal]
  - Cardio-respiratory arrest [Fatal]
